FAERS Safety Report 20344786 (Version 3)
Quarter: 2024Q2

REPORT INFORMATION
  Report Type: Spontaneous
  Country: US (occurrence: US)
  Receive Date: 20220118
  Receipt Date: 20240520
  Transmission Date: 20240715
  Serious: No
  Sender: FDA-Public Use
  Company Number: US-SA-SAC20220113000910

PATIENT
  Age: 13 Year
  Sex: Female
  Weight: 51.2 kg

DRUGS (1)
  1. DUPIXENT [Suspect]
     Active Substance: DUPILUMAB
     Indication: Dermatitis
     Dosage: 200 MG, QOW
     Route: 058

REACTIONS (5)
  - COVID-19 [Unknown]
  - SARS-CoV-2 test positive [Unknown]
  - Alopecia [Unknown]
  - Product use in unapproved indication [Unknown]
  - Intentional product misuse [Unknown]
